FAERS Safety Report 16803237 (Version 1)
Quarter: 2019Q3

REPORT INFORMATION
  Report Type: Spontaneous
  Country: DE (occurrence: DE)
  Receive Date: 20190913
  Receipt Date: 20190913
  Transmission Date: 20191005
  Serious: Yes (Death, Other)
  Sender: FDA-Public Use
  Company Number: DE-BIOVITRUM-2019DE2929

PATIENT
  Age: 6 Month

DRUGS (2)
  1. DEXAMETHASONE. [Concomitant]
     Active Substance: DEXAMETHASONE
  2. KINERET [Suspect]
     Active Substance: ANAKINRA
     Indication: FAMILIAL HAEMOPHAGOCYTIC LYMPHOHISTIOCYTOSIS
     Route: 065

REACTIONS (6)
  - Hepatosplenomegaly [Unknown]
  - International normalised ratio increased [Unknown]
  - Pulmonary oedema [Unknown]
  - Off label use [Unknown]
  - Hepatic enzyme increased [Unknown]
  - Death [Fatal]
